FAERS Safety Report 10580302 (Version 4)
Quarter: 2014Q4

REPORT INFORMATION
  Report Type: Spontaneous
  Country: JP (occurrence: JP)
  Receive Date: 20141112
  Receipt Date: 20141208
  Transmission Date: 20150529
  Serious: Yes (Hospitalization, Other)
  Sender: FDA-Public Use
  Company Number: ALCN2014JP006160

PATIENT
  Age: 54 Year
  Sex: Male
  Weight: 58 kg

DRUGS (1)
  1. DUOTRAV POLYQUAD [Suspect]
     Active Substance: TIMOLOL MALEATE\TRAVOPROST
     Indication: NORMAL TENSION GLAUCOMA
     Dosage: 1 UNK, UNK
     Route: 047
     Dates: start: 20120609, end: 20140407

REACTIONS (2)
  - Fall [Unknown]
  - Atrioventricular block complete [Recovering/Resolving]

NARRATIVE: CASE EVENT DATE: 20140407
